FAERS Safety Report 21260171 (Version 1)
Quarter: 2022Q3

REPORT INFORMATION
  Report Type: Report from Study
  Country: AU (occurrence: AU)
  Receive Date: 20220826
  Receipt Date: 20220826
  Transmission Date: 20221026
  Serious: Yes (Other)
  Sender: FDA-Public Use
  Company Number: AU-NOVARTISPH-NVSC2021AU230498

PATIENT
  Sex: Female

DRUGS (1)
  1. KESIMPTA [Suspect]
     Active Substance: OFATUMUMAB
     Indication: Relapsing-remitting multiple sclerosis
     Dosage: 20 MG, QMO
     Route: 058
     Dates: start: 20210702

REACTIONS (9)
  - Skin cancer [Unknown]
  - Nausea [Recovered/Resolved]
  - Pain [Unknown]
  - Asthenia [Unknown]
  - Feeling abnormal [Unknown]
  - Dyspepsia [Unknown]
  - Eructation [Unknown]
  - COVID-19 [Unknown]
  - Vomiting [Unknown]
